FAERS Safety Report 19585312 (Version 3)
Quarter: 2021Q4

REPORT INFORMATION
  Report Type: Spontaneous
  Country: US (occurrence: US)
  Receive Date: 20210721
  Receipt Date: 20211021
  Transmission Date: 20220303
  Serious: Yes (Other)
  Sender: FDA-Public Use
  Company Number: US-ROCHE-2873983

PATIENT
  Sex: Female

DRUGS (1)
  1. OCREVUS [Suspect]
     Active Substance: OCRELIZUMAB
     Indication: Multiple sclerosis
     Dosage: 300MG/10ML SINGLE DOSE VOLUME
     Route: 042
     Dates: start: 202105

REACTIONS (4)
  - Multiple sclerosis relapse [Unknown]
  - Palpitations [Unknown]
  - Dizziness [Unknown]
  - Fatigue [Unknown]
